FAERS Safety Report 13571629 (Version 2)
Quarter: 2017Q2

REPORT INFORMATION
  Report Type: Spontaneous
  Country: FR (occurrence: FR)
  Receive Date: 20170523
  Receipt Date: 20170623
  Transmission Date: 20170830
  Serious: No
  Sender: FDA-Public Use
  Company Number: FR-ABBVIE-17K-056-1982774-00

PATIENT
  Age: 30 Year
  Sex: Female
  Weight: 60 kg

DRUGS (2)
  1. HUMIRA [Suspect]
     Active Substance: ADALIMUMAB
     Indication: PSORIASIS
     Route: 058
  2. PENTASA [Concomitant]
     Active Substance: MESALAMINE
     Indication: CROHN^S DISEASE
     Route: 048

REACTIONS (4)
  - Scar [Unknown]
  - Keratoacanthoma [Recovered/Resolved with Sequelae]
  - Keratoacanthoma [Recovered/Resolved with Sequelae]
  - Skin discolouration [Unknown]

NARRATIVE: CASE EVENT DATE: 20161006
